FAERS Safety Report 10424396 (Version 1)
Quarter: 2014Q3

REPORT INFORMATION
  Report Type: Spontaneous
  Country: BR (occurrence: BR)
  Receive Date: 20140902
  Receipt Date: 20140902
  Transmission Date: 20150326
  Serious: Yes (Life-Threatening, Hospitalization, Other)
  Sender: FDA-Public Use
  Company Number: BR-BAYER-2014-126488

PATIENT
  Age: 36 Year
  Sex: Female

DRUGS (1)
  1. QLAIRA [Suspect]
     Active Substance: DIENOGEST\ESTRADIOL VALERATE
     Indication: CONTRACEPTION
     Dosage: UNK
     Route: 048
     Dates: start: 20121208, end: 201304

REACTIONS (30)
  - Hepatic encephalopathy [None]
  - Nephrolithiasis [None]
  - Aspartate aminotransferase increased [None]
  - Syncope [Recovered/Resolved]
  - Vision blurred [None]
  - Foetor hepaticus [Recovering/Resolving]
  - Swelling [None]
  - Oedema [None]
  - Asthenia [None]
  - Vomiting [Recovered/Resolved]
  - Hepatic lesion [Not Recovered/Not Resolved]
  - Deficiency of bile secretion [None]
  - Alanine aminotransferase increased [None]
  - Ocular icterus [None]
  - Somnolence [Recovering/Resolving]
  - Hepatitis cholestatic [None]
  - Generalised oedema [Recovering/Resolving]
  - Blister [None]
  - Nausea [Recovered/Resolved]
  - Petechiae [None]
  - Hepatic failure [None]
  - Back pain [None]
  - Vertigo [Recovered/Resolved]
  - Choluria [None]
  - Gastritis [None]
  - Pruritus [None]
  - General physical health deterioration [None]
  - Fatigue [None]
  - Jaundice [None]
  - Hyperthermia [None]

NARRATIVE: CASE EVENT DATE: 201212
